FAERS Safety Report 9843176 (Version 1)
Quarter: 2014Q1

REPORT INFORMATION
  Report Type: Report from Study
  Country: US (occurrence: US)
  Receive Date: 20140124
  Receipt Date: 20140124
  Transmission Date: 20141002
  Serious: Yes (Other)
  Sender: FDA-Public Use
  Company Number: US-ABBVIE-14P-163-1191457-00

PATIENT
  Age: 39 Year
  Sex: Male

DRUGS (1)
  1. HUMIRA [Suspect]
     Indication: CROHN^S DISEASE

REACTIONS (12)
  - Portal vein thrombosis [Recovered/Resolved]
  - Ascites [Unknown]
  - Hepatic cirrhosis [Unknown]
  - Vascular neoplasm [Recovered/Resolved]
  - Hepatic cancer [Recovered/Resolved]
  - Thyroidectomy [Unknown]
  - Cholecystectomy [Recovered/Resolved]
  - Splenectomy [Unknown]
  - Pleural effusion [Unknown]
  - Drug intolerance [Unknown]
  - Headache [Unknown]
  - Skin burning sensation [Unknown]
